FAERS Safety Report 9351445 (Version 1)
Quarter: 2013Q2

REPORT INFORMATION
  Report Type: Spontaneous
  Country: US (occurrence: US)
  Receive Date: 20130617
  Receipt Date: 20130617
  Transmission Date: 20140414
  Serious: Yes (Other)
  Sender: FDA-Public Use
  Company Number: US-BAYER-2013-073358

PATIENT
  Age: 59 Year
  Sex: Male

DRUGS (1)
  1. GADAVIST [Suspect]
     Indication: CENTRAL NERVOUS SYSTEM FUNCTION TEST ABNORMAL
     Dosage: 10 ML, ONCE
     Route: 042
     Dates: start: 20130612, end: 20130612

REACTIONS (2)
  - Nausea [Recovered/Resolved]
  - Oropharyngeal discomfort [Recovered/Resolved]
